FAERS Safety Report 4807885-5 (Version None)
Quarter: 2005Q4

REPORT INFORMATION
  Report Type: 
  Country: None (occurrence: None)
  Receive Date: 20051021
  Receipt Date: 20051017
  Transmission Date: 20060501
  Serious: Yes (Hospitalization)
  Sender: FDA-Public Use
  Company Number: ENTC2005-0312

PATIENT
  Age: 66 Year
  Sex: Female

DRUGS (2)
  1. STALEVO 100 [Suspect]
     Indication: PARKINSON'S DISEASE
     Dosage: SEE IMAGE
     Dates: start: 20050601, end: 20050601
  2. SINEMET [Suspect]
     Indication: PARKINSON'S DISEASE
     Dosage: ONE-HALF TABLET
     Dates: end: 20050601

REACTIONS (7)
  - CONTUSION [None]
  - CYANOSIS [None]
  - DIZZINESS [None]
  - DRY MOUTH [None]
  - DYSPNOEA [None]
  - FALL [None]
  - PHARYNGEAL OEDEMA [None]
